FAERS Safety Report 19366668 (Version 1)
Quarter: 2021Q2

REPORT INFORMATION
  Report Type: Spontaneous
  Country: US (occurrence: US)
  Receive Date: 20210603
  Receipt Date: 20210603
  Transmission Date: 20210717
  Serious: Yes (Life-Threatening, Hospitalization)
  Sender: FDA-Public Use
  Company Number: US-TEVA-2021-US-1917551

PATIENT
  Age: 69 Year
  Sex: Female

DRUGS (1)
  1. ROCURONIUM [Suspect]
     Active Substance: ROCURONIUM BROMIDE
     Indication: INDUCTION OF ANAESTHESIA
     Route: 065

REACTIONS (3)
  - Hypoxia [Unknown]
  - Sleep apnoea syndrome [Unknown]
  - Unresponsive to stimuli [Unknown]
